FAERS Safety Report 15748460 (Version 1)
Quarter: 2018Q4

REPORT INFORMATION
  Report Type: Spontaneous
  Country: US (occurrence: US)
  Receive Date: 20181221
  Receipt Date: 20181221
  Transmission Date: 20190205
  Serious: No
  Sender: FDA-Public Use
  Company Number: US-DRREDDYS-USA/USA/18/0104609

PATIENT
  Age: 16 Year
  Sex: Female

DRUGS (12)
  1. PERPHENAZINE. [Concomitant]
     Active Substance: PERPHENAZINE
     Indication: ABNORMAL BEHAVIOUR
     Dosage: 10 MG IN THE MORNING; 8 MG AT NIGHT
     Route: 065
  2. PERPHENAZINE. [Concomitant]
     Active Substance: PERPHENAZINE
     Indication: MOOD ALTERED
  3. RISPERIDONE. [Suspect]
     Active Substance: RISPERIDONE
     Indication: ABNORMAL BEHAVIOUR
  4. RISPERIDONE. [Suspect]
     Active Substance: RISPERIDONE
     Indication: PSYCHOTIC SYMPTOM
  5. PALIPERIDONE. [Concomitant]
     Active Substance: PALIPERIDONE
     Indication: ABNORMAL BEHAVIOUR
  6. PERPHENAZINE. [Concomitant]
     Active Substance: PERPHENAZINE
     Indication: PSYCHOTIC SYMPTOM
     Dosage: 10 MG IN THE MORNING; 8 MG AT NIGHT
  7. OLANZAPINE FILM-COATED TABLET [Suspect]
     Active Substance: OLANZAPINE
     Indication: PSYCHIATRIC SYMPTOM
     Route: 048
     Dates: start: 2016
  8. RISPERIDONE. [Suspect]
     Active Substance: RISPERIDONE
     Indication: AGGRESSION
  9. LAMOTRIGINE TABLETS [Suspect]
     Active Substance: LAMOTRIGINE
     Indication: PSYCHIATRIC SYMPTOM
     Dosage: 25 MG DAILY
     Route: 065
  10. PALIPERIDONE. [Concomitant]
     Active Substance: PALIPERIDONE
     Indication: MOOD ALTERED
     Route: 065
  11. PALIPERIDONE. [Concomitant]
     Active Substance: PALIPERIDONE
     Indication: PSYCHOTIC SYMPTOM
  12. RISPERIDONE. [Suspect]
     Active Substance: RISPERIDONE
     Indication: MOOD ALTERED
     Dosage: INCREASED DOSE
     Route: 065

REACTIONS (5)
  - Drug resistance [Unknown]
  - Drug ineffective [Unknown]
  - Galactorrhoea [Recovered/Resolved]
  - Hyperprolactinaemia [Recovered/Resolved]
  - Sedation complication [Unknown]

NARRATIVE: CASE EVENT DATE: 2016
